FAERS Safety Report 4849834-X (Version None)
Quarter: 2005Q4

REPORT INFORMATION
  Report Type: 
  Country: None (occurrence: None)
  Receive Date: 20051115
  Receipt Date: 20050720
  Transmission Date: 20060501
  Serious: Yes (Other)
  Sender: FDA-Public Use
  Company Number: 408816

PATIENT
  Age: 40 Year
  Sex: Male

DRUGS (2)
  1. PEGASYS [Suspect]
     Indication: HEPATITIS C
     Dosage: 180 MCG 1 PER WEEK SUBCUTANEOUS
     Route: 058
     Dates: start: 20050306
  2. COPEGUS [Suspect]
     Indication: HEPATITIS C
     Dosage: 600 MG 2 PER DAY ORAL
     Route: 048
     Dates: start: 20050306

REACTIONS (6)
  - COUGH [None]
  - COUGH DECREASED [None]
  - FATIGUE [None]
  - VISION BLURRED [None]
  - VISUAL ACUITY REDUCED [None]
  - WHITE BLOOD CELL COUNT [None]
